FAERS Safety Report 14184819 (Version 5)
Quarter: 2018Q1

REPORT INFORMATION
  Report Type: Report from Study
  Country: None (occurrence: BR)
  Receive Date: 20171113
  Receipt Date: 20180209
  Transmission Date: 20180508
  Serious: Yes (Death, Life-Threatening, Hospitalization, Disabling, Other)
  Sender: FDA-Public Use
  Company Number: BR-ABBVIE-17P-020-2120556-00

PATIENT
  Age: 72 Year
  Sex: Male
  Weight: 65 kg

DRUGS (1)
  1. VENETOCLAX. [Suspect]
     Active Substance: VENETOCLAX
     Indication: PLASMA CELL MYELOMA
     Route: 048
     Dates: start: 20170919, end: 20171011

REACTIONS (8)
  - Jaundice [Unknown]
  - Plasma cell myeloma [Fatal]
  - Multiple organ dysfunction syndrome [Fatal]
  - Asthenia [Unknown]
  - Anaemia [Unknown]
  - Pyrexia [Unknown]
  - Renal failure [Unknown]
  - Neutropenia [Recovered/Resolved]

NARRATIVE: CASE EVENT DATE: 20170926
